FAERS Safety Report 7064194 (Version 12)
Quarter: 2012Q4

REPORT INFORMATION
  Report Type: 
  Country: US (occurrence: US)
  Receive Date: 20090727
  Receipt Date: 20120927
  Transmission Date: 20130627
  Serious: Yes (Other)
  Sender: FDA-Public Use
  Company Number: PHEH2009US07671

PATIENT
  Age: 56 None
  Sex: Female

DRUGS (13)
  1. AREDIA [Suspect]
  2. ZOMETA [Suspect]
     Indication: MULTIPLE MYELOMA
     Dosage: 4 mg, QMO
  3. FOSAMAX [Suspect]
  4. ARIMIDEX [Concomitant]
  5. FLONASE [Concomitant]
  6. SYNTHROID [Concomitant]
  7. PERIDEX [Concomitant]
  8. COUMADIN ^BOOTS^ [Concomitant]
     Dosage: 2 mg, QD
     Route: 048
  9. TYLOX [Concomitant]
  10. CYCLOSPORIN A [Concomitant]
     Dosage: 150 mg, BID
  11. DAPSONE [Concomitant]
     Dosage: 100 mg,
  12. PREMPRO [Concomitant]
     Dosage: 1 DF,
  13. ARIMIDEX ^ASTRAZENECA^ [Concomitant]

REACTIONS (52)
  - Breast cancer [Unknown]
  - Second primary malignancy [Unknown]
  - Graft versus host disease [Unknown]
  - Oesophageal dilatation [Unknown]
  - Gastric ulcer [Unknown]
  - Foot fracture [Unknown]
  - Hernia [Unknown]
  - Uterine leiomyoma [Unknown]
  - Spinal compression fracture [Unknown]
  - Spinal column stenosis [Unknown]
  - Scoliosis [Unknown]
  - Pharyngo-oesophageal diverticulum [Unknown]
  - Spinal osteoarthritis [Unknown]
  - Arteriosclerosis [Unknown]
  - Pulmonary mass [Unknown]
  - Lymphoma [Unknown]
  - Upper respiratory tract infection [Unknown]
  - Dyspnoea [Unknown]
  - Osteonecrosis of jaw [Unknown]
  - General physical health deterioration [Unknown]
  - Pain [Unknown]
  - Anxiety [Unknown]
  - Anhedonia [Unknown]
  - Disability [Unknown]
  - Swelling face [Unknown]
  - Plasma cell myeloma in remission [Unknown]
  - Influenza [Unknown]
  - Pathological fracture [Unknown]
  - Fall [Unknown]
  - Skin papilloma [Unknown]
  - Papule [Unknown]
  - Folliculitis [Unknown]
  - Fibrous histiocytoma [Unknown]
  - Actinic keratosis [Unknown]
  - Abnormal loss of weight [Unknown]
  - Oesophageal candidiasis [Unknown]
  - Hepatitis [Unknown]
  - Bone lesion [Unknown]
  - Cervicitis [Unknown]
  - Metaplasia [Unknown]
  - Herpes zoster [Unknown]
  - Osteoporosis [Unknown]
  - Hip fracture [Unknown]
  - Humerus fracture [Unknown]
  - Asthma [Unknown]
  - Chest pain [Unknown]
  - Metastases to spine [Unknown]
  - Hypertrophy [Unknown]
  - Hypothyroidism [Unknown]
  - Bone density decreased [Unknown]
  - Dysphagia [Unknown]
  - Rash [Unknown]
